FAERS Safety Report 15252326 (Version 1)
Quarter: 2018Q3

REPORT INFORMATION
  Report Type: Spontaneous
  Country: US (occurrence: US)
  Receive Date: 20180717
  Receipt Date: 20180717
  Transmission Date: 20181010
  Serious: Yes (Disabling)
  Sender: FDA-Public Use
  Company Number: None

PATIENT
  Age: 46 Year
  Sex: Female
  Weight: 96.3 kg

DRUGS (8)
  1. VALSARTAN/HCTZ 320MG/12.5MG 90CT TABLETS [Suspect]
     Active Substance: HYDROCHLOROTHIAZIDE\VALSARTAN
     Indication: HYPERTENSION
     Dosage: ?          QUANTITY:90 TABLET(S);?
     Route: 048
     Dates: start: 20160101, end: 20180717
  2. XFACTOR PLUS VITAMIN [Concomitant]
  3. VITALBIOME PROBIOTIC [Concomitant]
  4. MEGA X OMEGAS [Concomitant]
  5. BIOCLEANSE (MAGNESIUM) [Concomitant]
  6. XOS PREBIOTIC [Concomitant]
  7. STOOL SOFTENER (NON STIMULANT) [Concomitant]
  8. PROBIO5 PROBIOTIC [Concomitant]

REACTIONS (1)
  - Hepatic neoplasm [None]

NARRATIVE: CASE EVENT DATE: 20160707
